FAERS Safety Report 11391659 (Version 2)
Quarter: 2015Q3

REPORT INFORMATION
  Report Type: Spontaneous
  Country: BR (occurrence: BR)
  Receive Date: 20150818
  Receipt Date: 20150910
  Transmission Date: 20151125
  Serious: Yes (Other)
  Sender: FDA-Public Use
  Company Number: BR-PFIZER INC-2015268667

PATIENT
  Age: 59 Year
  Sex: Female
  Weight: 51.5 kg

DRUGS (2)
  1. ECOFILM [Concomitant]
     Dosage: UNK
     Dates: start: 2012
  2. XALATAN [Suspect]
     Active Substance: LATANOPROST
     Indication: GLAUCOMA
     Dosage: ONE DROP , 1X/DAY
     Route: 047
     Dates: start: 2008, end: 201508

REACTIONS (3)
  - Drug ineffective [Unknown]
  - Eye disorder [Unknown]
  - Intraocular pressure increased [Unknown]

NARRATIVE: CASE EVENT DATE: 2014
